FAERS Safety Report 5158396-1 (Version None)
Quarter: 2006Q4

REPORT INFORMATION
  Report Type: 
  Country: None (occurrence: None)
  Receive Date: 20061128
  Receipt Date: 20061113
  Transmission Date: 20070319
  Serious: Yes (Death)
  Sender: FDA-Public Use
  Company Number: GB-ELI_LILLY_AND_COMPANY-GB200611004716

PATIENT
  Sex: Female

DRUGS (3)
  1. GEMCITABINE HCL [Suspect]
     Indication: NEOPLASM MALIGNANT
     Dosage: 1250 MG/M2, OTHER
     Route: 042
  2. OXALIPLATIN [Concomitant]
     Indication: NEOPLASM MALIGNANT
     Dosage: 130 MG/M2, UNK
  3. DEXAMETHASONE 4MG TAB [Concomitant]
     Indication: PROPHYLAXIS OF NAUSEA AND VOMITING

REACTIONS (1)
  - PULMONARY EMBOLISM [None]
